FAERS Safety Report 9834428 (Version 2)
Quarter: 2014Q1

REPORT INFORMATION
  Report Type: Report from Study
  Country: US (occurrence: US)
  Receive Date: 20140122
  Receipt Date: 20140122
  Transmission Date: 20141002
  Serious: Yes (Hospitalization)
  Sender: FDA-Public Use
  Company Number: PHHY2013US031734

PATIENT
  Age: 50 Year
  Sex: Male
  Weight: 65 kg

DRUGS (16)
  1. EVEROLIMUS [Suspect]
     Indication: NEUROENDOCRINE TUMOUR
     Dosage: 10 MG, QD
     Route: 048
     Dates: start: 20120409, end: 20130210
  2. OCTREOTIDE [Suspect]
     Dosage: 20 MG
     Dates: start: 20120409, end: 20131118
  3. BEVACIZUMAB [Suspect]
     Indication: NEUROENDOCRINE TUMOUR
     Dosage: 10 MG, UNK
     Route: 042
     Dates: start: 20120409, end: 20120423
  4. ASPIRIN [Concomitant]
  5. ENALAPRIL [Concomitant]
  6. INDAPAMIDE [Concomitant]
  7. NIFEDIAC [Concomitant]
  8. NOVOLOG [Concomitant]
  9. PLAVIX [Concomitant]
  10. WELCHOL [Concomitant]
  11. ATORVASTATIN [Concomitant]
  12. CLOPIDOGREL [Concomitant]
  13. INSULIN ASPART [Concomitant]
  14. LORAZEPAM A [Concomitant]
  15. NIFEDIPINE [Concomitant]
  16. PANCRELIPASE [Concomitant]

REACTIONS (15)
  - Myocardial infarction [Not Recovered/Not Resolved]
  - Angina pectoris [Not Recovered/Not Resolved]
  - Hypocalcaemia [Not Recovered/Not Resolved]
  - Hyponatraemia [Not Recovered/Not Resolved]
  - Acute coronary syndrome [Recovered/Resolved]
  - Chest discomfort [Unknown]
  - Hyperhidrosis [Not Recovered/Not Resolved]
  - Dyspnoea [Not Recovered/Not Resolved]
  - Hyperglycaemia [Not Recovered/Not Resolved]
  - Blood creatinine increased [Not Recovered/Not Resolved]
  - Weight decreased [Not Recovered/Not Resolved]
  - Fatigue [Not Recovered/Not Resolved]
  - Nausea [Recovered/Resolved]
  - Diarrhoea [Unknown]
  - Renal impairment [Unknown]
